FAERS Safety Report 23095663 (Version 1)
Quarter: 2023Q4

REPORT INFORMATION
  Report Type: Spontaneous
  Country: IT (occurrence: IT)
  Receive Date: 20231023
  Receipt Date: 20231023
  Transmission Date: 20240110
  Serious: Yes (Hospitalization)
  Sender: FDA-Public Use
  Company Number: None

PATIENT
  Age: 26 Year
  Sex: Female
  Weight: 60 kg

DRUGS (1)
  1. CYCLOPENTOLATE [Suspect]
     Active Substance: CYCLOPENTOLATE
     Indication: Pupil dilation procedure
     Dosage: CYCLOPENTOLATE 10 MG/ML; 1 GTT PER EYE 3 TIMES
     Route: 031
     Dates: start: 20230907

REACTIONS (5)
  - Malaise [Recovered/Resolved]
  - Blood pressure systolic increased [Recovered/Resolved]
  - Amnesia [Recovered/Resolved]
  - Dry mouth [Recovered/Resolved]
  - Disorientation [Recovered/Resolved]

NARRATIVE: CASE EVENT DATE: 20230907
